FAERS Safety Report 9356222 (Version 2)
Quarter: 2013Q4

REPORT INFORMATION
  Report Type: Spontaneous
  Country: JP (occurrence: JP)
  Receive Date: 20130619
  Receipt Date: 20131106
  Transmission Date: 20140711
  Serious: Yes (Hospitalization)
  Sender: FDA-Public Use
  Company Number: JP-GLAXOSMITHKLINE-B0899728A

PATIENT
  Age: 19 Year
  Sex: Female

DRUGS (2)
  1. LAMICTAL [Suspect]
     Indication: EPILEPSY
     Route: 048
     Dates: start: 201005, end: 201102
  2. DEPAKENE [Concomitant]
     Indication: EPILEPSY
     Route: 048
     Dates: start: 200610, end: 201005

REACTIONS (5)
  - Immunoglobulins decreased [Recovering/Resolving]
  - Urinary tract infection [Unknown]
  - C-reactive protein increased [Unknown]
  - Decreased immune responsiveness [Unknown]
  - Pyelonephritis acute [Unknown]
